FAERS Safety Report 6681206-8 (Version None)
Quarter: 2010Q2

REPORT INFORMATION
  Report Type: 
  Country: None (occurrence: None)
  Receive Date: 20100412
  Receipt Date: 20100329
  Transmission Date: 20101027
  Serious: Yes (Hospitalization, Other)
  Sender: FDA-Public Use
  Company Number: 1000003587

PATIENT
  Age: 41 Year
  Sex: Female
  Weight: 60 kg

DRUGS (5)
  1. ESCITALOPRAM [Suspect]
     Indication: DEPRESSION
     Dosage: 20 MG (10 MG,  2 IN 1 D), ORAL
     Route: 048
  2. STABLON [Concomitant]
  3. SERESTA [Concomitant]
  4. AOTAL [Concomitant]
  5. INTRAUTERINE CONTRACEPTIVE DEVICE WITH LEVONORGESTREL) [Concomitant]

REACTIONS (17)
  - ANXIETY [None]
  - CHOLESTASIS [None]
  - CYTOLYTIC HEPATITIS [None]
  - DECREASED APPETITE [None]
  - FAECAL INCONTINENCE [None]
  - FATIGUE [None]
  - HEADACHE [None]
  - HEPATITIS ALCOHOLIC [None]
  - HEPATOMEGALY [None]
  - HYPOAESTHESIA [None]
  - HYPOKALAEMIA [None]
  - MOTOR DYSFUNCTION [None]
  - SLEEP DISORDER [None]
  - TENSION [None]
  - URINARY INCONTINENCE [None]
  - WEIGHT DECREASED [None]
  - WITHDRAWAL SYNDROME [None]
